FAERS Safety Report 7409175-3 (Version None)
Quarter: 2011Q2

REPORT INFORMATION
  Report Type: 
  Country: None (occurrence: None)
  Receive Date: 20110412
  Receipt Date: 20110408
  Transmission Date: 20111010
  Serious: Yes (Death, Life-Threatening, Hospitalization, Other)
  Sender: FDA-Public Use
  Company Number: US-ASTRAZENECA-2011SE13744

PATIENT
  Age: 75 Year
  Sex: Female

DRUGS (12)
  1. ATENOLOL [Concomitant]
  2. MULTI-VITAMINS [Concomitant]
  3. ARIMIDEX [Suspect]
     Route: 048
  4. ASPIRIN [Concomitant]
  5. SYNTHROID [Concomitant]
  6. COMBIVENT [Concomitant]
  7. COUMADIN [Concomitant]
  8. ZOCOR [Concomitant]
  9. SYMBICORT [Suspect]
     Dosage: 160/4.5 MCG, 2 PUFFS TWICE DAILY
     Route: 055
  10. LISINOPRIL [Concomitant]
  11. FISH OIL [Concomitant]
  12. SYMBICORT [Suspect]
     Dosage: 160/4.5 MCG, DAILY
     Route: 055

REACTIONS (39)
  - BRONCHITIS [None]
  - CARDIAC FAILURE CONGESTIVE [None]
  - GASTROINTESTINAL HAEMORRHAGE [None]
  - PULMONARY OEDEMA [None]
  - HYPOTENSION [None]
  - TINNITUS [None]
  - HYPERLIPIDAEMIA [None]
  - HYPOVOLAEMIA [None]
  - ISCHAEMIC CARDIOMYOPATHY [None]
  - ACUTE MYOCARDIAL INFARCTION [None]
  - OSTEOARTHRITIS [None]
  - RESPIRATORY FAILURE [None]
  - PULMONARY FIBROSIS [None]
  - LUNG INFECTION [None]
  - ATRIAL FIBRILLATION [None]
  - ANAEMIA [None]
  - FALL [None]
  - LEUKOPENIA [None]
  - ASTHENIA [None]
  - AORTIC STENOSIS [None]
  - HYPOXIA [None]
  - PELVIC FRACTURE [None]
  - RENAL FAILURE ACUTE [None]
  - DIZZINESS [None]
  - CHRONIC OBSTRUCTIVE PULMONARY DISEASE [None]
  - BREAST CANCER [None]
  - ELECTROLYTE IMBALANCE [None]
  - BACK PAIN [None]
  - DEEP VEIN THROMBOSIS [None]
  - HYPERTENSIVE HEART DISEASE [None]
  - BLOOD CULTURE POSITIVE [None]
  - OSTEONECROSIS [None]
  - HYPERTENSION [None]
  - HYPOTHYROIDISM [None]
  - OSTEOPOROSIS [None]
  - DEATH [None]
  - DEHYDRATION [None]
  - ARTHRALGIA [None]
  - MITRAL VALVE INCOMPETENCE [None]
